FAERS Safety Report 7106539-2 (Version None)
Quarter: 2010Q4

REPORT INFORMATION
  Report Type: 
  Country: None (occurrence: None)
  Receive Date: 20101116
  Receipt Date: 20101111
  Transmission Date: 20110411
  Serious: Yes (Death, Hospitalization, Other)
  Sender: FDA-Public Use
  Company Number: IT-ELI_LILLY_AND_COMPANY-IT201010004483

PATIENT
  Sex: Male

DRUGS (10)
  1. ALIMTA [Suspect]
     Indication: PLEURAL MESOTHELIOMA
     Dosage: 850 MG, TOTAL
     Route: 042
     Dates: start: 20100802, end: 20100802
  2. XATRAL [Concomitant]
     Indication: BENIGN PROSTATIC HYPERPLASIA
     Dosage: 1 D/F, DAILY (1/D)
     Route: 048
  3. LEUKERAN [Concomitant]
     Indication: CHRONIC LYMPHOCYTIC LEUKAEMIA
     Dates: end: 20100301
  4. VITAMINS [Concomitant]
     Dosage: STANDARD
  5. CORTISONE [Concomitant]
     Dosage: STANDARD
     Route: 065
  6. NAPROSYN [Concomitant]
     Dosage: 500 MG, UNK
     Route: 048
     Dates: start: 20100806, end: 20100816
  7. ANTRA [Concomitant]
     Dosage: 20 MG, UNK
     Route: 048
     Dates: start: 20100801, end: 20100814
  8. FARLUTAL [Concomitant]
     Dosage: 500 MG, UNK
     Route: 048
     Dates: start: 20100802, end: 20100815
  9. FOLIC ACID [Concomitant]
     Dosage: 270 MG, DAILY (1/D)
     Route: 048
     Dates: start: 20100728, end: 20100816
  10. NULYTELY [Concomitant]
     Dosage: 27.6 G, UNK
     Route: 048
     Dates: start: 20100801, end: 20100816

REACTIONS (9)
  - CARDIAC DISORDER [None]
  - GALLBLADDER ENLARGEMENT [None]
  - GASTRIC ANTRAL VASCULAR ECTASIA [None]
  - HEPATOMEGALY [None]
  - JAUNDICE [None]
  - PANCYTOPENIA [None]
  - PLEURAL EFFUSION [None]
  - RENAL CYST [None]
  - SPLENOMEGALY [None]
